FAERS Safety Report 26151232 (Version 1)
Quarter: 2025Q4

REPORT INFORMATION
  Report Type: Spontaneous
  Country: US (occurrence: US)
  Receive Date: 20251212
  Receipt Date: 20251212
  Transmission Date: 20260118
  Serious: No
  Sender: GILEAD
  Company Number: US-GILEAD-2025-0740500

PATIENT
  Sex: Male

DRUGS (2)
  1. YEZTUGO [Suspect]
     Active Substance: LENACAPAVIR SODIUM
     Indication: Prophylaxis against HIV infection
     Dosage: UNK INJECTION ABOUT 1 MONTH AGO
     Route: 065
     Dates: start: 202511
  2. YEZTUGO [Suspect]
     Active Substance: LENACAPAVIR SODIUM
     Indication: Prophylaxis against HIV infection
     Dosage: UNK TABLETS ABOUT 1 MONTH AGO
     Route: 065
     Dates: start: 202511

REACTIONS (3)
  - Diarrhoea [Unknown]
  - Injection site pain [Not Recovered/Not Resolved]
  - Injection site nodule [Recovering/Resolving]
